FAERS Safety Report 25283991 (Version 1)
Quarter: 2025Q2

REPORT INFORMATION
  Report Type: Report from Study
  Country: US (occurrence: US)
  Receive Date: 20250508
  Receipt Date: 20250508
  Transmission Date: 20250717
  Serious: Yes (Other)
  Sender: EISAI
  Company Number: US-Eisai-EC-2025-188677

PATIENT
  Age: 53 Year
  Sex: Male
  Weight: 96 kg

DRUGS (18)
  1. LENVIMA [Suspect]
     Active Substance: LENVATINIB
     Indication: Renal cancer
     Dates: start: 20241113, end: 2024
  2. LENVIMA [Suspect]
     Active Substance: LENVATINIB
     Dates: start: 2024
  3. LENVIMA [Suspect]
     Active Substance: LENVATINIB
     Dates: start: 20250130, end: 202504
  4. LENVIMA [Suspect]
     Active Substance: LENVATINIB
     Dates: start: 20250412
  5. KEYTRUDA [Suspect]
     Active Substance: PEMBROLIZUMAB
     Indication: Renal cancer
  6. MS CONTIN [Concomitant]
     Active Substance: MORPHINE SULFATE
  7. OXYCODONE [Concomitant]
     Active Substance: OXYCODONE
  8. ACETAMINOPHEN [Concomitant]
     Active Substance: ACETAMINOPHEN
  9. ACYCLOVIR [Concomitant]
     Active Substance: ACYCLOVIR
  10. ALBUTEROL [Concomitant]
     Active Substance: ALBUTEROL
  11. CALCIUM\VITAMIN D [Concomitant]
     Active Substance: CALCIUM\VITAMIN D
  12. FAMOTIDINE [Concomitant]
     Active Substance: FAMOTIDINE
  13. FUROSEMIDE [Concomitant]
     Active Substance: FUROSEMIDE
  14. MAGNESIUM [Concomitant]
     Active Substance: MAGNESIUM
  15. MIRTAZAPINE [Concomitant]
     Active Substance: MIRTAZAPINE
  16. PREDNISONE [Concomitant]
     Active Substance: PREDNISONE
  17. PREGABALIN [Concomitant]
     Active Substance: PREGABALIN
  18. XARELTO [Concomitant]
     Active Substance: RIVAROXABAN

REACTIONS (3)
  - Acute kidney injury [Not Recovered/Not Resolved]
  - Oedema [Not Recovered/Not Resolved]
  - Proteinuria [Not Recovered/Not Resolved]

NARRATIVE: CASE EVENT DATE: 20250101
